FAERS Safety Report 5801346-2 (Version None)
Quarter: 2008Q2

REPORT INFORMATION
  Report Type: 
  Country: None (occurrence: None)
  Receive Date: 20080626
  Receipt Date: 20080407
  Transmission Date: 20081010
  Serious: Yes (Other)
  Sender: FDA-Public Use
  Company Number: 557304

PATIENT
  Sex: Female

DRUGS (2)
  1. XELODA [Suspect]
     Indication: SQUAMOUS CELL CARCINOMA
  2. OXALIPLATIN [Suspect]
     Indication: SQUAMOUS CELL CARCINOMA

REACTIONS (1)
  - NEOPLASM RECURRENCE [None]
